FAERS Safety Report 15781295 (Version 1)
Quarter: 2018Q4

REPORT INFORMATION
  Report Type: Spontaneous
  Country: US (occurrence: US)
  Receive Date: 20181212
  Receipt Date: 20181212
  Transmission Date: 20190205
  Serious: Yes (Other)
  Sender: FDA-Public Use
  Company Number: None

PATIENT
  Age: 60 Year
  Sex: Female
  Weight: 56.7 kg

DRUGS (1)
  1. ESTRADIOL 75MG [Suspect]
     Active Substance: ESTRADIOL
     Indication: MENOPAUSE
     Dates: start: 201802

REACTIONS (3)
  - Hot flush [None]
  - Device adhesion issue [None]
  - Application site rash [None]

NARRATIVE: CASE EVENT DATE: 20180218
